FAERS Safety Report 24603454 (Version 1)
Quarter: 2024Q4

REPORT INFORMATION
  Report Type: Spontaneous
  Country: NL (occurrence: NL)
  Receive Date: 20241111
  Receipt Date: 20241111
  Transmission Date: 20250115
  Serious: Yes (Hospitalization, Other)
  Sender: TEVA
  Company Number: None

PATIENT
  Age: 13 Year
  Sex: Male
  Weight: 56.2 kg

DRUGS (1)
  1. IBUPROFEN [Suspect]
     Active Substance: IBUPROFEN
     Indication: Pyrexia
     Dosage: 1 PIECE 3 TIMES A DAY, BRAND NAME NOT SPECIFIED
     Route: 065
     Dates: start: 20240604, end: 20240626

REACTIONS (1)
  - Gastrointestinal haemorrhage [Recovered/Resolved]
